FAERS Safety Report 11992421 (Version 1)
Quarter: 2016Q1

REPORT INFORMATION
  Report Type: Spontaneous
  Country: TR (occurrence: TR)
  Receive Date: 20160203
  Receipt Date: 20160203
  Transmission Date: 20160526
  Serious: Yes (Hospitalization)
  Sender: FDA-Public Use
  Company Number: TR-CIPLA LTD.-2016TR00571

PATIENT

DRUGS (3)
  1. SUVOXAMINE [Suspect]
     Active Substance: FLUVOXAMINE
     Indication: PSYCHOTIC DISORDER
     Dosage: 100 MG, QD
     Route: 065
  2. RISPERIDONE. [Suspect]
     Active Substance: RISPERIDONE
     Indication: PSYCHOTIC DISORDER
     Dosage: 2 MG, QD
     Route: 065
  3. CLONAZEPAM. [Suspect]
     Active Substance: CLONAZEPAM
     Indication: PSYCHOTIC DISORDER
     Dosage: 2 MG, QD
     Route: 065

REACTIONS (5)
  - Compulsions [Unknown]
  - Repetitive speech [Unknown]
  - Obsessive thoughts [None]
  - Movement disorder [Unknown]
  - Masked facies [Unknown]
